FAERS Safety Report 23636048 (Version 1)
Quarter: 2024Q1

REPORT INFORMATION
  Report Type: Spontaneous
  Country: US (occurrence: US)
  Receive Date: 20240315
  Receipt Date: 20240315
  Transmission Date: 20240409
  Serious: Yes (Death, Hospitalization)
  Sender: FDA-Public Use
  Company Number: US-DRL-USA-LIT/USA/24/0004205

PATIENT
  Age: 63 Year
  Sex: Male

DRUGS (3)
  1. ALBENDAZOLE [Suspect]
     Active Substance: ALBENDAZOLE
     Indication: Disseminated strongyloidiasis
     Route: 048
  2. IVERMECTIN [Suspect]
     Active Substance: IVERMECTIN
     Indication: Disseminated strongyloidiasis
     Route: 054
  3. DEXAMETHASONE [Concomitant]
     Active Substance: DEXAMETHASONE
     Indication: Nervous system disorder
     Route: 054

REACTIONS (1)
  - Drug ineffective [Fatal]
